FAERS Safety Report 6547723-6 (Version None)
Quarter: 2010Q1

REPORT INFORMATION
  Report Type: 
  Country: None (occurrence: None)
  Receive Date: 20100123
  Receipt Date: 20100119
  Transmission Date: 20100710
  Serious: Yes (Death, Hospitalization)
  Sender: FDA-Public Use
  Company Number: US-JNJFOC-20091005860

PATIENT
  Sex: Female

DRUGS (2)
  1. DURAGESIC-100 [Suspect]
     Indication: PAIN
     Route: 062
     Dates: start: 20090601, end: 20091009
  2. DURAGESIC-100 [Suspect]
     Route: 062
     Dates: start: 20090601, end: 20091009

REACTIONS (5)
  - DRUG PRESCRIBING ERROR [None]
  - FAILURE TO THRIVE [None]
  - GANGRENE [None]
  - MEGACOLON [None]
  - WITHDRAWAL SYNDROME [None]
